FAERS Safety Report 8269531-0 (Version None)
Quarter: 2012Q2

REPORT INFORMATION
  Report Type: 
  Country: None (occurrence: None)
  Receive Date: 20120409
  Receipt Date: 20120328
  Transmission Date: 20120825
  Serious: Yes (Hospitalization)
  Sender: FDA-Public Use
  Company Number: FR-BAXTER-2012BAX001063

PATIENT
  Sex: Male

DRUGS (9)
  1. MABTHERA [Suspect]
     Route: 042
     Dates: start: 20100531
  2. DOXORUBICIN HCL [Suspect]
     Route: 042
     Dates: start: 20100205, end: 20100327
  3. METHOTREXATE [Suspect]
     Route: 037
     Dates: start: 20100429, end: 20100514
  4. CYCLOPHOSPHAMIDE [Suspect]
     Route: 042
     Dates: start: 20100531
  5. BLEOMYCIN SULFATE [Suspect]
     Route: 042
     Dates: start: 20100205, end: 20100323
  6. CYTARABINE [Suspect]
     Route: 042
     Dates: end: 20100930
  7. IFOSFAMIDE [Suspect]
     Route: 042
     Dates: start: 20100531
  8. DEXRAZOXANE HYDROCHLORIDE [Suspect]
     Route: 042
     Dates: start: 20100205, end: 20100327
  9. ETOPOPHOS PRESERVATIVE FREE [Suspect]
     Route: 042
     Dates: start: 20100531

REACTIONS (1)
  - ACUTE MYELOMONOCYTIC LEUKAEMIA [None]
